FAERS Safety Report 4768989-9 (Version None)
Quarter: 2005Q3

REPORT INFORMATION
  Report Type: 
  Country: None (occurrence: None)
  Receive Date: 20050914
  Receipt Date: 20050901
  Transmission Date: 20060218
  Serious: Yes (Death, Hospitalization)
  Sender: FDA-Public Use
  Company Number: 2005121067

PATIENT
  Age: 45 Year
  Sex: Male

DRUGS (5)
  1. EPIRUBICIN [Suspect]
     Indication: GASTRIC CANCER
     Dosage: SEE IMAGE, INTRAVENOUS
     Route: 042
     Dates: start: 20030321, end: 20030321
  2. EPIRUBICIN [Suspect]
     Indication: GASTRIC CANCER
     Dosage: SEE IMAGE, INTRAVENOUS
     Route: 042
     Dates: start: 20030228
  3. CISPLATIN [Suspect]
     Indication: GASTRIC CANCER
     Dosage: SEE IMAGE, INTRAVENOUS
     Route: 042
     Dates: start: 20030321, end: 20030321
  4. CISPLATIN [Suspect]
     Indication: GASTRIC CANCER
     Dosage: SEE IMAGE, INTRAVENOUS
     Route: 042
     Dates: start: 20030228
  5. XELODA [Suspect]
     Indication: GASTRIC CANCER
     Dosage: (CYCLICAL), ORAL
     Route: 048
     Dates: start: 20030228

REACTIONS (8)
  - ASTHENIA [None]
  - BEDRIDDEN [None]
  - GENERAL PHYSICAL HEALTH DETERIORATION [None]
  - HAEMORRHAGE [None]
  - MUCOSAL INFLAMMATION [None]
  - NECROSIS [None]
  - ORAL INTAKE REDUCED [None]
  - PAIN [None]
